FAERS Safety Report 20031189 (Version 1)
Quarter: 2021Q4

REPORT INFORMATION
  Report Type: Spontaneous
  Country: ES (occurrence: ES)
  Receive Date: 20211103
  Receipt Date: 20211103
  Transmission Date: 20220303
  Serious: Yes (Other)
  Sender: FDA-Public Use
  Company Number: ES-NOVARTISPH-NVSC2021ES246841

PATIENT
  Age: 56 Year
  Sex: Male

DRUGS (8)
  1. CLARITHROMYCIN [Suspect]
     Active Substance: CLARITHROMYCIN
     Indication: Helicobacter infection
     Dosage: UNK
     Route: 065
  2. AMOXICILLIN [Suspect]
     Active Substance: AMOXICILLIN
     Indication: Helicobacter infection
     Dosage: UNK
     Route: 065
  3. AMOXICILLIN [Suspect]
     Active Substance: AMOXICILLIN
     Dosage: HIGH DOSE
     Route: 065
  4. LEVOFLOXACIN [Suspect]
     Active Substance: LEVOFLOXACIN
     Indication: Helicobacter infection
     Dosage: UNK
     Route: 065
  5. METRONIDAZOLE [Suspect]
     Active Substance: METRONIDAZOLE
     Indication: Helicobacter infection
     Dosage: UNK
     Route: 065
  6. BISMUTH [Suspect]
     Active Substance: BISMUTH
     Indication: Helicobacter infection
     Dosage: UNK
     Route: 065
  7. RIFABUTIN [Suspect]
     Active Substance: RIFABUTIN
     Indication: Helicobacter infection
     Dosage: UNK
     Route: 065
  8. TETRACYCLINE [Suspect]
     Active Substance: TETRACYCLINE
     Indication: Helicobacter infection
     Dosage: UNK
     Route: 065

REACTIONS (3)
  - Pathogen resistance [Unknown]
  - Treatment failure [Unknown]
  - Product use in unapproved indication [Unknown]
